FAERS Safety Report 8786072 (Version 2)
Quarter: 2012Q4

REPORT INFORMATION
  Report Type: 
  Country: TT (occurrence: TT)
  Receive Date: 20120914
  Receipt Date: 20121004
  Transmission Date: 20130627
  Serious: Yes (Other)
  Sender: FDA-Public Use
  Company Number: TT-BAYER-2012-093604

PATIENT
  Age: 35 Year
  Sex: Female
  Weight: 94 kg

DRUGS (1)
  1. MIRENA [Suspect]
     Dosage: 20 ?g, CONT
     Route: 015
     Dates: start: 20120501

REACTIONS (1)
  - Thrombosis [Unknown]
